FAERS Safety Report 4818384-9 (Version None)
Quarter: 2005Q4

REPORT INFORMATION
  Report Type: 
  Country: None (occurrence: None)
  Receive Date: 20051102
  Receipt Date: 20051010
  Transmission Date: 20060501
  Serious: Yes (Death)
  Sender: FDA-Public Use
  Company Number: 2005SE05730

PATIENT
  Age: 27093 Day
  Sex: Male

DRUGS (3)
  1. SEROQUEL [Suspect]
     Indication: PSYCHOMOTOR HYPERACTIVITY
     Route: 048
     Dates: start: 20041026
  2. SERENASE [Suspect]
     Indication: PSYCHOMOTOR HYPERACTIVITY
     Route: 048
     Dates: start: 20040201
  3. ELOPRAM [Suspect]
     Indication: DEPRESSED MOOD
     Route: 048
     Dates: start: 20040201

REACTIONS (15)
  - APATHY [None]
  - CARDIAC ARREST [None]
  - CATHETER RELATED INFECTION [None]
  - DEATH OF RELATIVE [None]
  - ELECTROCARDIOGRAM T WAVE AMPLITUDE DECREASED [None]
  - EXTRAPYRAMIDAL DISORDER [None]
  - GENITOURINARY TRACT INFECTION [None]
  - ORCHITIS [None]
  - SEPSIS [None]
  - SINUS TACHYCARDIA [None]
  - STRESS [None]
  - SUPRAVENTRICULAR EXTRASYSTOLES [None]
  - URINARY TRACT INFECTION [None]
  - VENTRICULAR EXTRASYSTOLES [None]
  - VENTRICULAR FIBRILLATION [None]
